FAERS Safety Report 16087805 (Version 8)
Quarter: 2021Q2

REPORT INFORMATION
  Report Type: Other
  Country: CA (occurrence: CA)
  Receive Date: 20190319
  Receipt Date: 20210623
  Transmission Date: 20210716
  Serious: Yes (Hospitalization, Other)
  Sender: FDA-Public Use
  Company Number: CA-ROCHE-1149336

PATIENT
  Age: 46 Year
  Sex: Female
  Weight: 77.6 kg

DRUGS (18)
  1. DIPHENHYDRAMINE HCL [Concomitant]
     Active Substance: DIPHENHYDRAMINE HYDROCHLORIDE
     Indication: PREMEDICATION
     Dosage: MOST  RECENT DOSE ON 12/DEC/2017
     Route: 048
     Dates: start: 20120522
  2. BRIOSCHI [Concomitant]
     Indication: HYPERSENSITIVITY
  3. RITUXAN [Suspect]
     Active Substance: RITUXIMAB
     Route: 042
     Dates: start: 20171227
  4. FOLIC ACID. [Concomitant]
     Active Substance: FOLIC ACID
  5. ACETAMINOPHEN. [Concomitant]
     Active Substance: ACETAMINOPHEN
     Route: 048
     Dates: start: 20171212
  6. PREDNISONE. [Concomitant]
     Active Substance: PREDNISONE
     Indication: PREMEDICATION
     Dosage: THE NIGHT BEFORE
     Route: 048
     Dates: start: 20120521, end: 20121022
  7. RITUXAN [Suspect]
     Active Substance: RITUXIMAB
     Indication: RHEUMATOID ARTHRITIS
     Dosage: LAST RITUXIMAB INFUSION: 12/DEC/2017
     Route: 042
     Dates: start: 20120522
  8. CELEBREX [Concomitant]
     Active Substance: CELECOXIB
  9. VENTOLIN [Concomitant]
     Active Substance: ALBUTEROL SULFATE
  10. PROZAC [Concomitant]
     Active Substance: FLUOXETINE HYDROCHLORIDE
  11. SOLU?MEDROL [Concomitant]
     Active Substance: METHYLPREDNISOLONE SODIUM SUCCINATE
     Indication: PREMEDICATION
     Route: 042
     Dates: start: 20151030
  12. TYLENOL [Concomitant]
     Active Substance: ACETAMINOPHEN
  13. METHOTREXATE. [Concomitant]
     Active Substance: METHOTREXATE
  14. DANDELION [Concomitant]
     Active Substance: TARAXACUM OFFICINALE POLLEN
  15. AERIUS [Concomitant]
  16. SYNTHROID [Concomitant]
     Active Substance: LEVOTHYROXINE SODIUM
  17. ACETAMINOPHEN. [Concomitant]
     Active Substance: ACETAMINOPHEN
     Indication: PREMEDICATION
     Route: 048
     Dates: start: 20120522
  18. METHYLPREDNISOLONE. [Concomitant]
     Active Substance: METHYLPREDNISOLONE
     Indication: PREMEDICATION
     Route: 042

REACTIONS (23)
  - Benign neoplasm of thyroid gland [Not Recovered/Not Resolved]
  - Urinary tract infection [Recovered/Resolved]
  - Blood pressure systolic increased [Unknown]
  - Nausea [Unknown]
  - Nasopharyngitis [Recovering/Resolving]
  - Dyspnoea [Not Recovered/Not Resolved]
  - Blood pressure systolic abnormal [Unknown]
  - Headache [Recovered/Resolved]
  - Pruritus [Recovered/Resolved]
  - Oropharyngeal pain [Unknown]
  - Throat irritation [Recovered/Resolved]
  - Infusion related reaction [Recovered/Resolved]
  - Weight increased [Not Recovered/Not Resolved]
  - Sinus disorder [Unknown]
  - Heart rate decreased [Unknown]
  - Localised infection [Unknown]
  - Blood pressure increased [Unknown]
  - Tracheal disorder [Unknown]
  - Cough [Recovered/Resolved]
  - Vertigo [Unknown]
  - Oxygen saturation decreased [Unknown]
  - Blood pressure diastolic abnormal [Unknown]
  - Throat clearing [Recovered/Resolved]

NARRATIVE: CASE EVENT DATE: 20121023
